FAERS Safety Report 7999523 (Version 3)
Quarter: 2017Q2

REPORT INFORMATION
  Report Type: Spontaneous
  Country: FR (occurrence: FR)
  Receive Date: 20110621
  Receipt Date: 20170613
  Transmission Date: 20170830
  Serious: Yes (Death, Other)
  Sender: FDA-Public Use
  Company Number: FR-CELGENEUS-056-50794-11061479

PATIENT

DRUGS (6)
  1. VIDAZA [Suspect]
     Active Substance: AZACITIDINE
     Indication: ACUTE MYELOID LEUKAEMIA
  2. PANOBINOSTAT [Concomitant]
     Active Substance: PANOBINOSTAT
     Indication: ACUTE MYELOID LEUKAEMIA
  3. VIDAZA [Suspect]
     Active Substance: AZACITIDINE
     Indication: CHRONIC MYELOMONOCYTIC LEUKAEMIA
  4. PANOBINOSTAT [Concomitant]
     Active Substance: PANOBINOSTAT
     Indication: CHRONIC MYELOMONOCYTIC LEUKAEMIA
  5. VIDAZA [Suspect]
     Active Substance: AZACITIDINE
     Indication: MYELODYSPLASTIC SYNDROME
     Dosage: 75 MILLIGRAM/SQ. METER
     Route: 065
  6. PANOBINOSTAT [Concomitant]
     Active Substance: PANOBINOSTAT
     Indication: MYELODYSPLASTIC SYNDROME
     Route: 048

REACTIONS (41)
  - Disease progression [Fatal]
  - Pulmonary haemorrhage [Fatal]
  - Cardio-respiratory arrest [Fatal]
  - Febrile neutropenia [Unknown]
  - Asthenia [Unknown]
  - Fatigue [Unknown]
  - Decreased appetite [Unknown]
  - Blood creatinine increased [Unknown]
  - Oedema peripheral [Unknown]
  - Treatment failure [Unknown]
  - Pneumonia [Unknown]
  - Nausea [Unknown]
  - Hypokalaemia [Unknown]
  - Cough [Unknown]
  - Atrial fibrillation [Unknown]
  - Syncope [Unknown]
  - Myelodysplastic syndrome [Unknown]
  - Neutropenia [Unknown]
  - Hypocalcaemia [Unknown]
  - Platelet count decreased [Unknown]
  - Cardiac failure [Fatal]
  - Renal failure [Fatal]
  - Arthritis [Unknown]
  - Embolism venous [Unknown]
  - Anaemia [Unknown]
  - Headache [Unknown]
  - Hyperbilirubinaemia [Unknown]
  - Colitis [Unknown]
  - Sepsis [Fatal]
  - Vomiting [Unknown]
  - Diarrhoea [Unknown]
  - Pyrexia [Unknown]
  - Dyspnoea [Unknown]
  - Abdominal pain [Unknown]
  - Constipation [Unknown]
  - Epistaxis [Unknown]
  - Thrombocytopenia [Unknown]
  - Weight decreased [Unknown]
  - Septic shock [Fatal]
  - Electrocardiogram QT prolonged [Unknown]
  - Dehydration [Unknown]
